FAERS Safety Report 9166051 (Version 1)
Quarter: 2013Q1

REPORT INFORMATION
  Report Type: Spontaneous
  Country: BR (occurrence: BR)
  Receive Date: 20130315
  Receipt Date: 20130315
  Transmission Date: 20140127
  Serious: Yes (Hospitalization)
  Sender: FDA-Public Use
  Company Number: BR-PFIZER INC-2012077236

PATIENT
  Age: 57 Year
  Sex: Male
  Weight: 87 kg

DRUGS (8)
  1. ATENOLOL [Suspect]
     Dosage: 25 MG, 2X/DAY
     Route: 048
     Dates: start: 2008
  2. CRESTOR [Suspect]
     Indication: BLOOD CHOLESTEROL INCREASED
     Dosage: 10 MG, DAILY
     Route: 048
     Dates: end: 2008
  3. CRESTOR [Suspect]
     Dosage: 20 MG, DAILY
     Route: 048
     Dates: start: 2008
  4. CLOPIDOGREL SULFATE [Suspect]
     Indication: CHEST PAIN
     Dosage: UNK
     Route: 048
     Dates: start: 2008, end: 201204
  5. MONOCORDIL [Suspect]
     Dosage: UNK
     Route: 048
     Dates: start: 2008
  6. EZETROL [Concomitant]
     Dosage: UNK
     Route: 065
     Dates: start: 2008
  7. ASA [Concomitant]
     Dosage: UNK
     Route: 048
     Dates: start: 1998
  8. DIOVAN [Concomitant]
     Dosage: UNK
     Route: 048
     Dates: start: 1998

REACTIONS (3)
  - Myocardial infarction [Recovered/Resolved]
  - Chest pain [Not Recovered/Not Resolved]
  - Inappropriate schedule of drug administration [Not Recovered/Not Resolved]
